FAERS Safety Report 5301357-X (Version None)
Quarter: 2007Q2

REPORT INFORMATION
  Report Type: 
  Country: None (occurrence: None)
  Receive Date: 20070418
  Receipt Date: 20070410
  Transmission Date: 20071010
  Serious: Yes (Life-Threatening, Hospitalization)
  Sender: FDA-Public Use
  Company Number: ES-PFIZER INC-2007028531

PATIENT
  Age: 62 Year
  Sex: Female
  Weight: 65 kg

DRUGS (3)
  1. SOGILEN [Suspect]
     Indication: PARKINSON'S DISEASE
     Route: 048
     Dates: start: 20060801, end: 20070101
  2. SINEMET [Concomitant]
     Dates: start: 20050801
  3. SINEMET [Concomitant]
     Indication: PARKINSON'S DISEASE
     Route: 048

REACTIONS (2)
  - QUADRIPLEGIA [None]
  - RESPIRATORY PARALYSIS [None]
